FAERS Safety Report 15851249 (Version 2)
Quarter: 2019Q1

REPORT INFORMATION
  Report Type: Spontaneous
  Country: US (occurrence: US)
  Receive Date: 20190122
  Receipt Date: 20190305
  Transmission Date: 20190417
  Serious: Yes (Hospitalization, Other)
  Sender: FDA-Public Use
  Company Number: US-ASTRAZENECA-2019SE12160

PATIENT
  Age: 144 Day
  Sex: Male
  Weight: 6.3 kg

DRUGS (4)
  1. ALDACTAZIDE [Concomitant]
     Active Substance: HYDROCHLOROTHIAZIDE\SPIRONOLACTONE
  2. SYNAGIS [Suspect]
     Active Substance: PALIVIZUMAB
     Dosage: 50 MG
     Route: 030
     Dates: start: 20181113
  3. NACL [Concomitant]
     Active Substance: SODIUM CHLORIDE
  4. SYNAGIS [Suspect]
     Active Substance: PALIVIZUMAB
     Dosage: 12 MG
     Route: 030
     Dates: start: 20181212

REACTIONS (2)
  - Acute respiratory failure [Unknown]
  - Respiratory syncytial virus infection [Recovered/Resolved]

NARRATIVE: CASE EVENT DATE: 20190101
